FAERS Safety Report 4341468-9 (Version None)
Quarter: 2004Q2

REPORT INFORMATION
  Report Type: 
  Country: None (occurrence: None)
  Receive Date: 20040415
  Receipt Date: 20040325
  Transmission Date: 20050107
  Serious: Yes (Other)
  Sender: FDA-Public Use
  Company Number: USA040363264

PATIENT
  Age: 57 Year
  Sex: Male

DRUGS (1)
  1. HUMULIN L [Suspect]
     Indication: DIABETES MELLITUS
     Dates: start: 19960101

REACTIONS (1)
  - CEREBROVASCULAR ACCIDENT [None]
